FAERS Safety Report 7647242-X (Version None)
Quarter: 2011Q3

REPORT INFORMATION
  Report Type: 
  Country: None (occurrence: None)
  Receive Date: 20110801
  Receipt Date: 20100610
  Transmission Date: 20111222
  Serious: Yes (Other)
  Sender: FDA-Public Use
  Company Number: US-BAYER-201011644NA

PATIENT
  Age: 54 Year
  Sex: Male
  Weight: 89.342 kg

DRUGS (13)
  1. ADALAT [Concomitant]
  2. BUMEX [Concomitant]
  3. MAGNEVIST [Suspect]
     Indication: NUCLEAR MAGNETIC RESONANCE IMAGING
     Route: 042
     Dates: start: 19991017, end: 19991017
  4. LOSARTAN POTASSIUM [Concomitant]
  5. COZAAR [Concomitant]
  6. MAGNEVIST [Suspect]
     Indication: AORTOGRAM
     Route: 042
     Dates: start: 20051022, end: 20051022
  7. FERROUS SULFATE TAB [Concomitant]
  8. LIPITOR [Concomitant]
  9. DOXAZOSIN MESYLATE [Concomitant]
  10. HYDROXYCHLOROQUINE SULFATE [Concomitant]
     Route: 048
     Dates: start: 20070614, end: 20070628
  11. EPOGEN [Concomitant]
  12. MAGNEVIST [Suspect]
     Indication: NUCLEAR MAGNETIC RESONANCE IMAGING BRAIN
     Route: 042
     Dates: start: 19990509, end: 19990509
  13. ARANESP [Concomitant]

REACTIONS (18)
  - PAIN IN EXTREMITY [None]
  - SKIN TIGHTNESS [None]
  - GENERAL PHYSICAL HEALTH DETERIORATION [None]
  - OCULAR ICTERUS [None]
  - SKIN HYPERTROPHY [None]
  - DEFORMITY [None]
  - JOINT CONTRACTURE [None]
  - MUSCULOSKELETAL PAIN [None]
  - SKIN HYPERPIGMENTATION [None]
  - SKIN DISORDER [None]
  - BURNING SENSATION [None]
  - PAIN [None]
  - SKIN INDURATION [None]
  - FATIGUE [None]
  - NEPHROGENIC SYSTEMIC FIBROSIS [None]
  - SCAR [None]
  - LIMB DISCOMFORT [None]
  - MUSCLE TIGHTNESS [None]
